FAERS Safety Report 23713808 (Version 3)
Quarter: 2024Q3

REPORT INFORMATION
  Report Type: Spontaneous
  Country: US (occurrence: US)
  Receive Date: 20240405
  Receipt Date: 20240717
  Transmission Date: 20241017
  Serious: No
  Sender: SANDOZ
  Company Number: US-SANDOZ-SDZ2024US035686

PATIENT
  Sex: Female

DRUGS (1)
  1. ALBUTEROL SULFATE [Suspect]
     Active Substance: ALBUTEROL SULFATE
     Indication: Dyspnoea
     Dosage: 1 PUFF 4 TIMES A DAY AS NEEDED
     Route: 065
     Dates: start: 20240315

REACTIONS (2)
  - Drug delivery system issue [Unknown]
  - Drug dose omission by device [Unknown]
